FAERS Safety Report 6932415-1 (Version None)
Quarter: 2010Q3

REPORT INFORMATION
  Report Type: 
  Country: None (occurrence: None)
  Receive Date: 20100817
  Receipt Date: 20100803
  Transmission Date: 20110219
  Serious: Yes (Hospitalization)
  Sender: FDA-Public Use
  Company Number: 2010P1000640

PATIENT
  Sex: Female

DRUGS (2)
  1. COLCHICINE 0.6 MG TABLETS (NO PREF. NAME) [Suspect]
     Indication: ACCIDENTAL EXPOSURE
     Dosage: 10-30 TABLETS; X1; PO
     Route: 048
     Dates: start: 20100731, end: 20100731
  2. CLARITIN [Suspect]
     Dosage: PO
     Route: 048
     Dates: start: 20100731, end: 20100731

REACTIONS (15)
  - ANAEMIA [None]
  - CELL DEATH [None]
  - DIARRHOEA [None]
  - EPISTAXIS [None]
  - GASTROINTESTINAL DISORDER [None]
  - GENERAL PHYSICAL HEALTH DETERIORATION [None]
  - HEART RATE INCREASED [None]
  - LIVER FUNCTION TEST ABNORMAL [None]
  - NAUSEA [None]
  - RENAL FAILURE [None]
  - RENAL PAIN [None]
  - SEPSIS [None]
  - URINARY TRACT INFECTION [None]
  - VOMITING [None]
  - WRONG DRUG ADMINISTERED [None]
